FAERS Safety Report 4302210-0 (Version None)
Quarter: 2004Q1

REPORT INFORMATION
  Report Type: 
  Country: None (occurrence: None)
  Receive Date: 20040126
  Receipt Date: 20031008
  Transmission Date: 20041129
  Serious: No
  Sender: FDA-Public Use
  Company Number: USA031049394

PATIENT
  Age: 10 Year
  Sex: Male
  Weight: 31 kg

DRUGS (5)
  1. STRATTERA [Suspect]
     Indication: ATTENTION DEFICIT/HYPERACTIVITY DISORDER
     Dosage: 40 MG/DAY
     Dates: start: 20030401
  2. ALBUTEROL [Concomitant]
  3. FLONASE [Concomitant]
  4. BENADRYL [Concomitant]
  5. RITALIN [Concomitant]

REACTIONS (4)
  - DRUG INEFFECTIVE [None]
  - HEART RATE INCREASED [None]
  - WEIGHT DECREASED [None]
  - WEIGHT INCREASED [None]
